FAERS Safety Report 17043680 (Version 4)
Quarter: 2020Q1

REPORT INFORMATION
  Report Type: Spontaneous
  Country: US (occurrence: US)
  Receive Date: 20191118
  Receipt Date: 20200309
  Transmission Date: 20200409
  Serious: No
  Sender: FDA-Public Use
  Company Number: US-ACTELION-A-NJ2019-191004

PATIENT
  Age: 18 Year
  Sex: Female
  Weight: 58.96 kg

DRUGS (6)
  1. ACCUTANE [Suspect]
     Active Substance: ISOTRETINOIN
     Indication: PRODUCT USED FOR UNKNOWN INDICATION
     Dosage: UNK
     Route: 065
     Dates: start: 20191031
  2. UPTRAVI [Suspect]
     Active Substance: SELEXIPAG
     Dosage: 1000 MCG, BID
     Route: 048
  3. TADALAFIL. [Concomitant]
     Active Substance: TADALAFIL
  4. UPTRAVI [Suspect]
     Active Substance: SELEXIPAG
     Indication: PULMONARY HYPERTENSION
     Dosage: 600 MCG, BID
     Route: 048
  5. TYVASO [Concomitant]
     Active Substance: TREPROSTINIL
  6. OPSUMIT [Suspect]
     Active Substance: MACITENTAN
     Indication: PULMONARY HYPERTENSION
     Dosage: 10 MG, QD
     Route: 048

REACTIONS (20)
  - Diarrhoea [Unknown]
  - Weight decreased [Unknown]
  - Gastrooesophageal reflux disease [Unknown]
  - Wheezing [Unknown]
  - Dyspnoea exertional [Unknown]
  - Chest pain [Unknown]
  - Feeling abnormal [Unknown]
  - Abdominal pain [Unknown]
  - Epistaxis [Recovered/Resolved]
  - Decreased appetite [Unknown]
  - Photophobia [Unknown]
  - Pain in jaw [Unknown]
  - Vomiting [Unknown]
  - Anxiety [Unknown]
  - Myalgia [Unknown]
  - Acne [Unknown]
  - Palpitations [Unknown]
  - Headache [Unknown]
  - Flushing [Unknown]
  - Nausea [Unknown]

NARRATIVE: CASE EVENT DATE: 20191031
